FAERS Safety Report 7931996-9 (Version None)
Quarter: 2011Q4

REPORT INFORMATION
  Report Type: 
  Country: None (occurrence: None)
  Receive Date: 20111121
  Receipt Date: 20110808
  Transmission Date: 20120403
  Serious: No
  Sender: FDA-Public Use
  Company Number: US-BAYER-2011-077634

PATIENT
  Sex: Female

DRUGS (2)
  1. NAPROXEN SODIUM [Suspect]
     Indication: BACK PAIN
  2. NAPROXEN SODIUM [Suspect]
     Indication: ARTHRITIS
     Dosage: 275 MG, UNK

REACTIONS (9)
  - FEELING JITTERY [None]
  - MUSCULAR WEAKNESS [None]
  - ABDOMINAL DISCOMFORT [None]
  - FEELING ABNORMAL [None]
  - SWELLING [None]
  - DYSPHAGIA [None]
  - MUSCLE SPASMS [None]
  - FLUID RETENTION [None]
  - BLOOD PRESSURE INCREASED [None]
